FAERS Safety Report 8958298 (Version 1)
Quarter: 2012Q4

REPORT INFORMATION
  Report Type: 
  Country: US (occurrence: US)
  Receive Date: 20121210
  Receipt Date: 20121210
  Transmission Date: 20130627
  Serious: No
  Sender: FDA-Public Use
  Company Number: US-009507513-1212USA002797

PATIENT
  Age: 15 Year
  Sex: Male

DRUGS (3)
  1. MAXALT [Suspect]
     Dosage: UNK
  2. VISTARIL [Suspect]
  3. INDERAL [Concomitant]

REACTIONS (1)
  - Therapeutic response decreased [Unknown]
